FAERS Safety Report 9315441 (Version 1)
Quarter: 2013Q2

REPORT INFORMATION
  Report Type: Spontaneous
  Country: US (occurrence: US)
  Receive Date: 20130529
  Receipt Date: 20130529
  Transmission Date: 20140414
  Serious: No
  Sender: FDA-Public Use
  Company Number: US-ASTRAZENECA-2013SE34929

PATIENT
  Age: 56 Year
  Sex: Female
  Weight: 90.7 kg

DRUGS (4)
  1. TOPROL-XL [Suspect]
     Indication: HEART RATE INCREASED
     Route: 048
     Dates: end: 20130430
  2. TOPROL-XL [Suspect]
     Indication: HYPERTENSION
     Route: 048
     Dates: end: 20130430
  3. METOPROLOL SUCCINATE (OTHER MANUFACTURERE) [Suspect]
     Indication: HEART RATE INCREASED
     Route: 048
     Dates: start: 20130501
  4. METOPROLOL SUCCINATE (OTHER MANUFACTURERE) [Suspect]
     Indication: HYPERTENSION
     Route: 048
     Dates: start: 20130501

REACTIONS (3)
  - Dysphagia [Unknown]
  - Foreign body [Not Recovered/Not Resolved]
  - Intentional drug misuse [Unknown]
